FAERS Safety Report 16115350 (Version 3)
Quarter: 2019Q2

REPORT INFORMATION
  Report Type: Spontaneous
  Country: US (occurrence: US)
  Receive Date: 20190325
  Receipt Date: 20190410
  Transmission Date: 20190711
  Serious: No
  Sender: FDA-Public Use
  Company Number: US-PFIZER INC-2019127154

PATIENT
  Age: 64 Year
  Sex: Female

DRUGS (1)
  1. XELJANZ XR [Suspect]
     Active Substance: TOFACITINIB CITRATE
     Dosage: 11 MG, UNK
     Route: 048

REACTIONS (11)
  - Arthritis [Unknown]
  - Insomnia [Unknown]
  - Neck pain [Unknown]
  - Gait inability [Unknown]
  - Arthralgia [Unknown]
  - Psoriasis [Unknown]
  - Pain [Unknown]
  - Swelling face [Unknown]
  - Musculoskeletal pain [Unknown]
  - Dysstasia [Unknown]
  - Back pain [Unknown]
